FAERS Safety Report 22669789 (Version 6)
Quarter: 2024Q1

REPORT INFORMATION
  Report Type: Spontaneous
  Country: JP (occurrence: JP)
  Receive Date: 20230704
  Receipt Date: 20240325
  Transmission Date: 20240409
  Serious: Yes (Hospitalization, Other)
  Sender: FDA-Public Use
  Company Number: JP-ONO-2023JP016589

PATIENT
  Age: 55 Year
  Sex: Female
  Weight: 49.6 kg

DRUGS (17)
  1. YERVOY [Suspect]
     Active Substance: IPILIMUMAB
     Indication: Squamous cell carcinoma of lung
     Dosage: 2 TIME DOSE
     Route: 041
     Dates: start: 20220209, end: 20220413
  2. YERVOY [Suspect]
     Active Substance: IPILIMUMAB
     Indication: Non-small cell lung cancer recurrent
  3. OPDIVO [Suspect]
     Active Substance: NIVOLUMAB
     Indication: Squamous cell carcinoma of lung
     Dosage: 4 TIME DOSE
     Route: 041
     Dates: start: 20220209, end: 20220413
  4. OPDIVO [Suspect]
     Active Substance: NIVOLUMAB
     Indication: Non-small cell lung cancer recurrent
  5. CARBOPLATIN [Suspect]
     Active Substance: CARBOPLATIN
     Indication: Squamous cell carcinoma of lung
     Dosage: 4 COURSES
     Route: 041
     Dates: start: 20211208, end: 20220302
  6. CARBOPLATIN [Suspect]
     Active Substance: CARBOPLATIN
     Indication: Non-small cell lung cancer recurrent
  7. PACLITAXEL [Suspect]
     Active Substance: PACLITAXEL
     Indication: Squamous cell carcinoma of lung
     Dosage: 4 COURSES
     Route: 041
     Dates: start: 20211208, end: 20220302
  8. PACLITAXEL [Suspect]
     Active Substance: PACLITAXEL
     Indication: Non-small cell lung cancer recurrent
  9. PREDNISOLONE [Concomitant]
     Active Substance: PREDNISOLONE
     Indication: Radiation pneumonitis
     Route: 048
     Dates: start: 202204
  10. PREDNISOLONE [Concomitant]
     Active Substance: PREDNISOLONE
     Indication: Liver disorder
     Dosage: AFTER BREAKFAST
     Route: 048
     Dates: start: 20220509, end: 20220802
  11. SULFAMETHOXAZOLE\TRIMETHOPRIM [Concomitant]
     Active Substance: SULFAMETHOXAZOLE\TRIMETHOPRIM
     Indication: Product used for unknown indication
     Dosage: 1 DF, EVERYDAY AFTER BREAKFAST
     Route: 048
     Dates: start: 20220517, end: 20220802
  12. OLOPATADINE HYDROCHLORIDE [Concomitant]
     Active Substance: OLOPATADINE HYDROCHLORIDE
     Indication: Product used for unknown indication
     Dosage: MORNING AND BEFORE SLEEPING
     Route: 048
  13. DIMEMORFAN PHOSPHATE [Concomitant]
     Active Substance: DIMEMORFAN PHOSPHATE
     Indication: Product used for unknown indication
     Dosage: AFTER EVERY MEAL AND BEFORE GOING TO BED
     Route: 048
  14. VONOPRAZAN FUMARATE [Concomitant]
     Active Substance: VONOPRAZAN FUMARATE
     Indication: Product used for unknown indication
     Dosage: AFTER DINNER
     Route: 048
  15. ZOPICLONE [Concomitant]
     Active Substance: ZOPICLONE
     Indication: Product used for unknown indication
     Dosage: BEFORE GOING TO BED
     Route: 048
  16. RINDERON VG [Concomitant]
     Active Substance: BETAMETHASONE VALERATE\GENTAMICIN SULFATE
     Indication: Product used for unknown indication
     Dosage: SEVERAL TIMES A DAY
     Route: 061
  17. MAGNESIUM OXIDE [Concomitant]
     Active Substance: MAGNESIUM OXIDE
     Indication: Product used for unknown indication
     Dosage: AFTER EVERY MEAL
     Route: 048

REACTIONS (2)
  - Bronchopulmonary aspergillosis [Recovered/Resolved]
  - Immune-mediated hepatic disorder [Recovered/Resolved]

NARRATIVE: CASE EVENT DATE: 20220509
